FAERS Safety Report 8608933-7 (Version None)
Quarter: 2012Q3

REPORT INFORMATION
  Report Type: 
  Country: None (occurrence: None)
  Receive Date: 20120821
  Receipt Date: 20120815
  Transmission Date: 20120928
  Serious: Yes (Other)
  Sender: FDA-Public Use
  Company Number: US-BAYER-2012-058477

PATIENT
  Age: 61 Year
  Sex: Female
  Weight: 124.72 kg

DRUGS (34)
  1. VECURONIUM BROMIDE [Concomitant]
     Dosage: UNK
     Dates: start: 20040803, end: 20040803
  2. VERSED [Concomitant]
     Dosage: UNK
     Dates: start: 20040803, end: 20040803
  3. PROPOFOL [Concomitant]
     Dosage: UNK
     Dates: start: 20040803, end: 20040803
  4. AMIODARONE HCL [Concomitant]
  5. RED BLOOD CELLS [Concomitant]
     Dosage: 2 U, UNK
  6. MUCOMYST [Concomitant]
  7. LOTREL [Concomitant]
  8. TRASYLOL [Suspect]
     Dosage: 200 ML PUMP PRIME
     Dates: start: 20040803, end: 20040803
  9. TRASYLOL [Suspect]
     Dosage: 200 ML LOADING DOE
     Dates: start: 20040803, end: 20040803
  10. PROTAMINE SULFATE [Concomitant]
     Dosage: UNK
     Dates: start: 20040803, end: 20040803
  11. MANNITOL [Concomitant]
     Dosage: UNK
     Dates: start: 20040803, end: 20040803
  12. COLACE [Concomitant]
  13. LEXAPRO [Concomitant]
  14. ALBUTEROL [Concomitant]
  15. NORVASC [Concomitant]
  16. INSULIN [Concomitant]
  17. PROMETHAZINE [Concomitant]
  18. LIDOCAINE [Concomitant]
     Dosage: UNK
     Dates: start: 20040803, end: 20040803
  19. PROTONIX [Concomitant]
  20. RESTORIL [Concomitant]
  21. TRASYLOL [Suspect]
     Dosage: 50 CC/HR INFUSION
     Dates: start: 20040803, end: 20040803
  22. FENTANYL CITRATE [Concomitant]
     Dosage: UNK
     Dates: start: 20040803, end: 20040803
  23. LEVAQUIN [Concomitant]
  24. ATROPINE SULFATE [Concomitant]
  25. TRASYLOL [Suspect]
     Indication: CORONARY ARTERY BYPASS
     Dosage: 1 ML, TEST DOSE
     Route: 042
     Dates: start: 20040803, end: 20040803
  26. FORANE [Concomitant]
     Dosage: UNK
     Dates: start: 20040803, end: 20040803
  27. MILRINONE LACTATE [Concomitant]
     Dosage: UNK
     Dates: start: 20040803, end: 20040803
  28. ANCEF [Concomitant]
     Dosage: 1 G, UNK
     Dates: start: 20040803, end: 20040803
  29. LASIX [Concomitant]
     Dosage: 40 MG, UNK
     Dates: start: 20040803, end: 20040803
  30. HEPARIN [Concomitant]
     Dosage: UNK
     Dates: start: 20040803, end: 20040803
  31. CARDIOPLEGIA [Concomitant]
     Dosage: UNK
     Dates: start: 20040803, end: 20040803
  32. EPINEPHRINE [Concomitant]
     Dosage: UNK
     Dates: start: 20040803, end: 20040803
  33. DROPERIDOL [Concomitant]
  34. HYTRIN [Concomitant]

REACTIONS (3)
  - RENAL FAILURE CHRONIC [None]
  - SICK SINUS SYNDROME [None]
  - OLIGURIA [None]
